FAERS Safety Report 6843373-2 (Version None)
Quarter: 2010Q3

REPORT INFORMATION
  Report Type: 
  Country: None (occurrence: None)
  Receive Date: 20100712
  Receipt Date: 20100701
  Transmission Date: 20110219
  Serious: Yes (Life-Threatening, Other)
  Sender: FDA-Public Use
  Company Number: 2010MA000395

PATIENT
  Age: 3 Year
  Sex: Male

DRUGS (1)
  1. IBUPROFEN [Suspect]
     Indication: ACCIDENTAL EXPOSURE
     Dosage: 2360 MG; X1; PO
     Route: 048
     Dates: start: 20070110, end: 20070110

REACTIONS (1)
  - ACCIDENTAL DRUG INTAKE BY CHILD [None]
